FAERS Safety Report 9882948 (Version 1)
Quarter: 2014Q1

REPORT INFORMATION
  Report Type: Spontaneous
  Country: JP (occurrence: JP)
  Receive Date: 20140208
  Receipt Date: 20140208
  Transmission Date: 20141002
  Serious: Yes (Other)
  Sender: FDA-Public Use
  Company Number: JP-ROCHE-1343197

PATIENT
  Age: 39 Year
  Sex: Male

DRUGS (1)
  1. TAMIFLU [Suspect]
     Indication: ANTIVIRAL PROPHYLAXIS
     Dosage: LAST DOSE PRIOR TO THE EVENT : 17/JAN/2014
     Route: 048
     Dates: start: 20140114

REACTIONS (1)
  - Depressed level of consciousness [Recovered/Resolved]
